FAERS Safety Report 7002521-4 (Version None)
Quarter: 2010Q3

REPORT INFORMATION
  Report Type: 
  Country: None (occurrence: None)
  Receive Date: 20100920
  Receipt Date: 20100115
  Transmission Date: 20110219
  Serious: Yes (Other)
  Sender: FDA-Public Use
  Company Number: US-ASTRAZENECA-2009SE17923

PATIENT
  Age: 55 Year
  Sex: Male
  Weight: 79.4 kg

DRUGS (6)
  1. SEROQUEL [Suspect]
     Indication: SLEEP DISORDER
     Route: 048
     Dates: start: 20060101, end: 20080101
  2. SEROQUEL [Suspect]
     Route: 048
     Dates: start: 20070226
  3. NEXIUM [Concomitant]
     Dates: start: 20070226
  4. ADVAIR DISKUS 100/50 [Concomitant]
     Dates: start: 20070226
  5. REMERON [Concomitant]
     Dates: start: 20070226
  6. DEPAKOTE [Concomitant]
     Dates: start: 20070226

REACTIONS (2)
  - DIABETIC COMA [None]
  - TYPE 1 DIABETES MELLITUS [None]
